FAERS Safety Report 8271434-2 (Version None)
Quarter: 2012Q2

REPORT INFORMATION
  Report Type: 
  Country: None (occurrence: None)
  Receive Date: 20120410
  Receipt Date: 20120405
  Transmission Date: 20120825
  Serious: Yes (Other)
  Sender: FDA-Public Use
  Company Number: PHHY2012CY022181

PATIENT
  Sex: Male

DRUGS (1)
  1. GILENYA [Suspect]
     Indication: RELAPSING-REMITTING MULTIPLE SCLEROSIS
     Dosage: 0.5 MG, QD
     Dates: start: 20120305, end: 20120312

REACTIONS (4)
  - HAEMATOCHEZIA [None]
  - HAEMORRHOIDS [None]
  - RESPIRATORY TRACT INFECTION VIRAL [None]
  - PYREXIA [None]
